FAERS Safety Report 4592340-0 (Version None)
Quarter: 2005Q1

REPORT INFORMATION
  Report Type: 
  Country: None (occurrence: None)
  Receive Date: 20050228
  Receipt Date: 20041213
  Transmission Date: 20050727
  Serious: Yes (Other)
  Sender: FDA-Public Use
  Company Number: US-BRISTOL-MYERS SQUIBB COMPANY-12793386

PATIENT
  Age: 50 Year
  Sex: Female
  Weight: 81 kg

DRUGS (11)
  1. ABILIFY [Suspect]
     Indication: PSYCHOTIC DISORDER
     Dosage: DOSE RANGED FROM 15 TO 30 MG/DAY.
     Route: 048
     Dates: start: 20040816, end: 20040901
  2. CLOZAPINE [Suspect]
     Indication: PSYCHOTIC DISORDER
     Dosage: DOSE RANGED FROM 25 MG/TWICE DAILY UP TO 400 MG/DAY, THEN 300 MG/DAY
     Route: 048
     Dates: start: 20040809
  3. CLOZAPINE [Suspect]
     Indication: SCHIZOPHRENIA
     Dosage: DOSE RANGED FROM 25 MG/TWICE DAILY UP TO 400 MG/DAY, THEN 300 MG/DAY
     Route: 048
     Dates: start: 20040809
  4. ZYPREXA [Suspect]
     Indication: PSYCHOTIC DISORDER
     Dosage: DOSE RANGED FROM 10 TO 20 MG/DAY
     Route: 048
     Dates: start: 20040729, end: 20040825
  5. LOSARTAN POTASSIUM [Concomitant]
  6. DOCUSATE SODIUM [Concomitant]
  7. FERROUS SULFATE TAB [Concomitant]
  8. TRAZODONE HCL [Concomitant]
  9. CHLORPROMAZINE [Concomitant]
  10. VENLAFAXINE HCL [Concomitant]
  11. MIRTAZAPINE [Concomitant]

REACTIONS (1)
  - PLATELET COUNT INCREASED [None]
